FAERS Safety Report 21938657 (Version 1)
Quarter: 2023Q1

REPORT INFORMATION
  Report Type: Spontaneous
  Country: JP (occurrence: JP)
  Receive Date: 20230201
  Receipt Date: 20230201
  Transmission Date: 20230417
  Serious: Yes (Hospitalization, Other)
  Sender: FDA-Public Use
  Company Number: JP-TAKEDA-2021TJP127246

PATIENT
  Age: 73 Year
  Sex: Female
  Weight: 38.2 kg

DRUGS (4)
  1. CABOMETYX [Interacting]
     Active Substance: CABOZANTINIB S-MALATE
     Indication: Renal cancer
     Dosage: 40 MG, QD
     Route: 048
     Dates: start: 20210705, end: 20210729
  2. CABOMETYX [Interacting]
     Active Substance: CABOZANTINIB S-MALATE
     Dosage: 20 MG, QD
     Route: 048
     Dates: start: 20210730, end: 20220204
  3. ZOLEDRONIC ACID [Interacting]
     Active Substance: ZOLEDRONIC ACID
     Indication: Metastases to bone
     Dosage: 4 MG, Q4WEEKS
     Route: 041
     Dates: start: 20180119, end: 20190422
  4. DENOSUMAB [Interacting]
     Active Substance: DENOSUMAB
     Indication: Metastases to bone
     Dosage: 120 MG, Q4WEEKS
     Route: 030
     Dates: start: 20131015, end: 20160426

REACTIONS (5)
  - Osteonecrosis of jaw [Recovering/Resolving]
  - Decreased appetite [Unknown]
  - Taste disorder [Unknown]
  - Drug interaction [Unknown]
  - Adverse event [Unknown]

NARRATIVE: CASE EVENT DATE: 20211203
